FAERS Safety Report 24437062 (Version 1)
Quarter: 2024Q4

REPORT INFORMATION
  Report Type: Spontaneous
  Country: GB (occurrence: GB)
  Receive Date: 20241015
  Receipt Date: 20241015
  Transmission Date: 20250115
  Serious: Yes (Hospitalization)
  Sender: MYLAN
  Company Number: GB-MYLANLABS-2024M1091656

PATIENT
  Age: 11 Year
  Sex: Male

DRUGS (6)
  1. ZOLEDRONIC ACID [Suspect]
     Active Substance: ZOLEDRONIC ACID
     Indication: Duchenne muscular dystrophy
     Dosage: UNK, INITIAL DOSE OF ZOLEDRONIC-ACID NOT STATED, INFUSION
     Route: 042
  2. ZOLEDRONIC ACID [Suspect]
     Active Substance: ZOLEDRONIC ACID
     Indication: Osteoporosis
     Dosage: 0.012 MILLILITRE PER KILOGRAM, INFUSION
     Route: 042
  3. HYDROCORTISONE [Concomitant]
     Active Substance: HYDROCORTISONE
     Indication: Duchenne muscular dystrophy
     Dosage: UNK, RECEIVED HYDROCORTISONE STRESS-DOSE HYDROCORTISONE
     Route: 065
  4. HYDROCORTISONE [Concomitant]
     Active Substance: HYDROCORTISONE
     Indication: Osteoporosis
  5. CALCIUM [Concomitant]
     Active Substance: CALCIUM
     Indication: Duchenne muscular dystrophy
     Dosage: UNK
     Route: 065
  6. CALCIUM [Concomitant]
     Active Substance: CALCIUM
     Indication: Osteoporosis

REACTIONS (1)
  - Rhabdomyolysis [Recovered/Resolved]
